FAERS Safety Report 9894665 (Version 2)
Quarter: 2014Q2

REPORT INFORMATION
  Report Type: Spontaneous
  Country: US (occurrence: US)
  Receive Date: 20140213
  Receipt Date: 20140620
  Transmission Date: 20141212
  Serious: Yes (Death, Hospitalization)
  Sender: FDA-Public Use
  Company Number: US-B.I. PHARMACEUTICALS,INC./RIDGEFIELD-2014-BI-06386BP

PATIENT
  Age: 71 Year
  Sex: Female

DRUGS (5)
  1. SPIRIVA [Suspect]
     Indication: CHRONIC OBSTRUCTIVE PULMONARY DISEASE
     Dosage: 18 MCG
     Route: 055
     Dates: start: 201104
  2. ADVAIR [Concomitant]
     Route: 055
  3. ALBUTEROL [Concomitant]
     Route: 055
  4. ALPRAZOLAM [Concomitant]
     Route: 048
  5. CLARITIN [Concomitant]
     Route: 048

REACTIONS (2)
  - Road traffic accident [Fatal]
  - Injury [Fatal]
